FAERS Safety Report 13959197 (Version 1)
Quarter: 2017Q3

REPORT INFORMATION
  Report Type: Spontaneous
  Country: US (occurrence: US)
  Receive Date: 20170911
  Receipt Date: 20170911
  Transmission Date: 20171128
  Serious: Yes (Other)
  Sender: FDA-Public Use
  Company Number: None

PATIENT
  Age: 30 Year
  Sex: Male
  Weight: 103.86 kg

DRUGS (1)
  1. BUPRENORPHINE/NALOXONE [Suspect]
     Active Substance: BUPRENORPHINE\NALOXONE
     Indication: DRUG DEPENDENCE
     Route: 002
     Dates: start: 20170721, end: 20170911

REACTIONS (4)
  - Restlessness [None]
  - Insomnia [None]
  - Therapy change [None]
  - Cold sweat [None]

NARRATIVE: CASE EVENT DATE: 20170721
